FAERS Safety Report 25378360 (Version 1)
Quarter: 2025Q2

REPORT INFORMATION
  Report Type: Spontaneous
  Country: US (occurrence: US)
  Receive Date: 20250530
  Receipt Date: 20250530
  Transmission Date: 20250717
  Serious: Yes (Death, Other)
  Sender: TEVA
  Company Number: US-TEVA-VS-3336224

PATIENT
  Age: 67 Year
  Sex: Female

DRUGS (3)
  1. LOSARTAN [Suspect]
     Active Substance: LOSARTAN
     Indication: Hypertension
     Route: 065
  2. LOSARTAN [Suspect]
     Active Substance: LOSARTAN
     Indication: Hypertension
     Route: 065
  3. LOSARTAN [Suspect]
     Active Substance: LOSARTAN
     Indication: Hypertension
     Route: 065

REACTIONS (1)
  - Colorectal cancer [Fatal]
